FAERS Safety Report 8265998 (Version 2)
Quarter: 2013Q2

REPORT INFORMATION
  Report Type: Spontaneous
  Country: JP (occurrence: JP)
  Receive Date: 20111129
  Receipt Date: 20130402
  Transmission Date: 20140414
  Serious: Yes (Death, Other)
  Sender: FDA-Public Use
  Company Number: JP-ELI_LILLY_AND_COMPANY-JP201111004748

PATIENT
  Age: 77 Year
  Sex: Female

DRUGS (1)
  1. FORTEO [Suspect]
     Route: 058

REACTIONS (8)
  - Death [Fatal]
  - Fracture [Unknown]
  - Palpitations [Unknown]
  - Inappropriate schedule of drug administration [Unknown]
  - Gastrointestinal disorder [Unknown]
  - Constipation [Unknown]
  - Pyrexia [Unknown]
  - Nausea [Unknown]
